FAERS Safety Report 24195254 (Version 1)
Quarter: 2024Q3

REPORT INFORMATION
  Report Type: Spontaneous
  Country: US (occurrence: US)
  Receive Date: 20240809
  Receipt Date: 20240809
  Transmission Date: 20241016
  Serious: No
  Sender: FRESENIUS KABI
  Company Number: US-FreseniusKabi-FK202412219

PATIENT

DRUGS (1)
  1. XYLOCAINE WITH EPINEPHRINE [Suspect]
     Active Substance: EPINEPHRINE BITARTRATE\LIDOCAINE HYDROCHLORIDE
     Indication: Local anaesthesia
     Dosage: FORM OF ADMINISTRATION: INJECTION?ROUTE OF ADMINISTRATION: INTRANASAL?DOSE: ASKED BUT UNKNOWN

REACTIONS (2)
  - Nodal rhythm [Recovered/Resolved]
  - Off label use [Unknown]
